FAERS Safety Report 23974348 (Version 2)
Quarter: 2024Q4

REPORT INFORMATION
  Report Type: Report from Study
  Country: CA (occurrence: CA)
  Receive Date: 20240614
  Receipt Date: 20241207
  Transmission Date: 20250115
  Serious: Yes (Hospitalization)
  Sender: CELLTRION
  Company Number: CA-CELLTRION INC.-2024CA013981

PATIENT

DRUGS (17)
  1. RITUXIMAB-ABBS [Suspect]
     Active Substance: RITUXIMAB-ABBS
     Indication: Vasculitis
     Dosage: 500 MG, Q6 MONTHS
     Route: 042
     Dates: start: 20231208
  2. PREDNISONE [Concomitant]
     Active Substance: PREDNISONE
     Dosage: 5MG (TAPER BY 2.5MG EVERY 2 WEEKS)/BY NOVEMBER SHOULD BE ON 5MG OR LESS
  3. NITRO-DUR [Concomitant]
     Active Substance: NITROGLYCERIN
     Indication: Blood pressure management
     Dosage: 0.6MCG (3 PATCHES AT ONCE FOR 12 HOURS/BP)
  4. SULFATRIM [Concomitant]
     Active Substance: SULFAMETHOXAZOLE\TRIMETHOPRIM
     Dosage: 800/160MG (1 TABLET ONCE DAILY/ANTIBIOTIC)
  5. SYNTHROID [Concomitant]
     Active Substance: LEVOTHYROXINE SODIUM
     Dosage: 0.15MG (THYROID)
  6. CALCIUM [Concomitant]
     Active Substance: CALCIUM
     Dosage: 500MG (1 TAB ONCE DAILY)
  7. AMLODIPINE [Concomitant]
     Active Substance: AMLODIPINE BESYLATE
     Indication: Blood pressure measurement
     Dosage: 10MG (ONCE DAILY FOR BP)
  8. DOXAZOSIN [Concomitant]
     Active Substance: DOXAZOSIN\DOXAZOSIN MESYLATE
     Indication: Blood pressure management
     Dosage: 10MG ONCE DAILY FOR BP
  9. RAMIPRIL [Concomitant]
     Active Substance: RAMIPRIL
     Indication: Blood pressure management
     Dosage: 2.5 MG (ONCE DAILY FOR BP)
  10. ATORVASTATIN [Concomitant]
     Active Substance: ATORVASTATIN
     Indication: Blood cholesterol
     Dosage: 20MG (FOR CHOLESTEROL)
  11. METOPROLOL [Concomitant]
     Active Substance: METOPROLOL
     Indication: Blood pressure management
     Dosage: 75MG (TWICE DAILY FOR BP)
  12. MELATONIN [Concomitant]
     Active Substance: MELATONIN
     Indication: Sleep disorder
     Dosage: 6MG (ONCE DAILY FOR SLEEP)
  13. VITAMIN D NOS [Concomitant]
     Active Substance: CHOLECALCIFEROL\ERGOCALCIFEROL
     Dosage: 1,000 I.U. ONCE DAILY
  14. DOCUSATE SODIUM [Concomitant]
     Active Substance: DOCUSATE SODIUM
     Indication: Constipation
     Dosage: 200MG (2 CAPS TWICE DAILY FOR CONSTIPATION)
  15. PANTOPRAZOLE [Concomitant]
     Active Substance: PANTOPRAZOLE
     Indication: Gastrooesophageal reflux disease
     Dosage: 40MG (ONCE DAILY FOR ACID REFLUX)
  16. PAROXETINE [Concomitant]
     Active Substance: PAROXETINE
     Indication: Anxiety
     Dosage: 30MG (ONCE DAILY FOR ANXIETY)
  17. VAGIFEM [Concomitant]
     Active Substance: ESTRADIOL
     Dosage: 10UG INSERT 1 TAB VAGINALLY TWICE DAILY
     Route: 067

REACTIONS (2)
  - Hospitalisation [Unknown]
  - Off label use [Unknown]
